FAERS Safety Report 6893709-1 (Version None)
Quarter: 2010Q3

REPORT INFORMATION
  Report Type: 
  Country: None (occurrence: None)
  Receive Date: 20100731
  Receipt Date: 20100712
  Transmission Date: 20110219
  Serious: Yes (Other)
  Sender: FDA-Public Use
  Company Number: US-PFIZER INC-2007097226

PATIENT
  Sex: Female

DRUGS (3)
  1. NORVASC [Suspect]
     Dosage: UNK
  2. AMLODIPINE BESYLATE [Suspect]
     Dosage: UNK
  3. DIOVAN [Concomitant]

REACTIONS (4)
  - BLOOD PRESSURE DECREASED [None]
  - DYSGEUSIA [None]
  - FEELING COLD [None]
  - SOMNOLENCE [None]
